FAERS Safety Report 14193176 (Version 1)
Quarter: 2017Q4

REPORT INFORMATION
  Report Type: Spontaneous
  Country: US (occurrence: US)
  Receive Date: 20171115
  Receipt Date: 20171115
  Transmission Date: 20180321
  Serious: No
  Sender: FDA-Public Use
  Company Number: US-BAUSCH-BL-2016-027995

PATIENT
  Age: 7 Year
  Sex: Male

DRUGS (1)
  1. XENAZINE [Suspect]
     Active Substance: TETRABENAZINE
     Indication: TIC
     Dosage: HALF TABLET IN THE MORNING AND ONE TABLET AT BEDTIME.
     Route: 048
     Dates: start: 20161025

REACTIONS (3)
  - Drug administration error [Unknown]
  - Off label use [Unknown]
  - Memory impairment [Not Recovered/Not Resolved]

NARRATIVE: CASE EVENT DATE: 2016
